FAERS Safety Report 23224739 (Version 1)
Quarter: 2023Q4

REPORT INFORMATION
  Report Type: Spontaneous
  Country: CN (occurrence: CN)
  Receive Date: 20231124
  Receipt Date: 20231124
  Transmission Date: 20240110
  Serious: No
  Sender: FDA-Public Use
  Company Number: CN-ALKEM LABORATORIES LIMITED-CN-ALKEM-2023-09335

PATIENT
  Sex: Female

DRUGS (6)
  1. METFORMIN HYDROCHLORIDE [Suspect]
     Active Substance: METFORMIN HYDROCHLORIDE
     Indication: Glucose tolerance impaired
     Dosage: (1500-2000 MG ORALLY DAILY)
     Route: 048
  2. METFORMIN HYDROCHLORIDE [Suspect]
     Active Substance: METFORMIN HYDROCHLORIDE
     Dosage: 500 MILLIGRAM, TID (INITIAL DOSE BEFORE MEALS FOR 1 WEEK)
     Route: 048
  3. METFORMIN HYDROCHLORIDE [Suspect]
     Active Substance: METFORMIN HYDROCHLORIDE
     Dosage: 1000 MILLIGRAM, BID (BEFORE MEALS (BREAKFAST AND DINNER) AFTER 1 WEEK)
     Route: 048
  4. EXENATIDE [Suspect]
     Active Substance: EXENATIDE
     Indication: Glucose tolerance impaired
     Dosage: (10-20 MICROGRAM DAILY INJECTION)
     Route: 065
  5. EXENATIDE [Suspect]
     Active Substance: EXENATIDE
     Dosage: 10 MICROGRAM, QD (INITIAL INJECTED DOSE)
     Route: 065
  6. EXENATIDE [Suspect]
     Active Substance: EXENATIDE
     Dosage: 20 MICROGRAM, QD (AFTER 1 MONTH)
     Route: 065

REACTIONS (1)
  - Treatment noncompliance [Unknown]
